FAERS Safety Report 7750383-X (Version None)
Quarter: 2011Q3

REPORT INFORMATION
  Report Type: 
  Country: None (occurrence: None)
  Receive Date: 20110914
  Receipt Date: 20110906
  Transmission Date: 20111222
  Serious: Yes (Hospitalization)
  Sender: FDA-Public Use
  Company Number: RU-B.I. PHARMACEUTICALS,INC./RIDGEFIELD-2011-AP-00455AP

PATIENT
  Age: 66 Year
  Sex: Female

DRUGS (12)
  1. CEFAZOLIN [Concomitant]
     Indication: ANTIBIOTIC PROPHYLAXIS
     Dosage: 2000 MG
     Dates: start: 20110721, end: 20110721
  2. METAMIZOL NATRII [Concomitant]
     Indication: PAIN
     Dosage: 2 ML
     Dates: start: 20110722, end: 20110722
  3. TRAMADOL HYDROCHLORIDE AND ACETAMINOPHEN [Concomitant]
     Indication: PAIN
     Dosage: 225 MG/1950 MG
     Dates: start: 20110722, end: 20110801
  4. KETOPROFEN [Concomitant]
     Dosage: 300 MG
     Dates: start: 20110722, end: 20110801
  5. MIDAZOLAM HCL [Concomitant]
     Indication: PREMEDICATION
     Dosage: 5 MG
     Dates: start: 20110721
  6. DIPHENHYDRAMINUM [Concomitant]
     Indication: PREMEDICATION
     Dosage: 10 MG
     Dates: start: 20110721, end: 20110721
  7. DIPHENHYDRAMINUM [Concomitant]
     Indication: PAIN
     Dosage: 1 MG
     Dates: start: 20110722, end: 20110722
  8. INDAPAMIDUM [Concomitant]
  9. PRADAXA [Suspect]
     Indication: THROMBOSIS PROPHYLAXIS
     Dosage: 220 MG
     Route: 048
     Dates: start: 20110722, end: 20110801
  10. FENAZEPAM [Concomitant]
     Indication: PREMEDICATION
     Dosage: 1 MG
     Dates: start: 20110720
  11. OMEPRAZOLE [Concomitant]
     Indication: PEPTIC ULCER
     Dosage: 20 MG
     Dates: start: 20110722, end: 20110801
  12. LOSARTAN POTASSIUM [Concomitant]

REACTIONS (1)
  - DRUG INEFFECTIVE [None]
